FAERS Safety Report 5919287-9 (Version None)
Quarter: 2008Q4

REPORT INFORMATION
  Report Type: 
  Country: None (occurrence: None)
  Receive Date: 20081015
  Receipt Date: 20081004
  Transmission Date: 20090506
  Serious: Yes (Hospitalization)
  Sender: FDA-Public Use
  Company Number: PHHO2008JP11742

PATIENT
  Sex: Male
  Weight: 59 kg

DRUGS (8)
  1. NEORAL [Suspect]
     Indication: RENAL TRANSPLANT
     Dosage: 200 MG, QD
     Dates: start: 20080828
  2. MYCOPHENOLATE MOFETIL [Suspect]
     Indication: RENAL TRANSPLANT
     Dosage: 2 G, QD
     Dates: start: 20080731, end: 20080926
  3. MEDROL [Suspect]
     Indication: RENAL TRANSPLANT
     Dosage: 4 MG, QD
     Dates: start: 20080911
  4. RAD 666 RAD+TAB+PTR [Suspect]
     Indication: RENAL TRANSPLANT
  5. AMLODIN [Concomitant]
  6. DIOVAN [Concomitant]
  7. LIPITOR [Concomitant]
  8. EPADEL [Concomitant]

REACTIONS (5)
  - COUGH [None]
  - OROPHARYNGEAL PAIN [None]
  - PNEUMONIA [None]
  - PYREXIA [None]
  - RHINORRHOEA [None]
